FAERS Safety Report 6596009-2 (Version None)
Quarter: 2010Q1

REPORT INFORMATION
  Report Type: 
  Country: None (occurrence: None)
  Receive Date: 20100223
  Receipt Date: 20100212
  Transmission Date: 20100710
  Serious: Yes (Disabling, Other)
  Sender: FDA-Public Use
  Company Number: PHHY2010CA07645

PATIENT
  Sex: Female

DRUGS (2)
  1. ACLASTA [Suspect]
     Indication: OSTEOPOROSIS
     Dosage: 5 MG ONCE YEARLY
     Dates: start: 20090101
  2. ACLASTA [Suspect]
     Dosage: 5 MG ONCE YEARLY
     Dates: start: 20100203

REACTIONS (4)
  - ARTHRALGIA [None]
  - HYPOTENSION [None]
  - INSOMNIA [None]
  - MYALGIA [None]
